FAERS Safety Report 8298716-2 (Version None)
Quarter: 2012Q2

REPORT INFORMATION
  Report Type: 
  Country: None (occurrence: None)
  Receive Date: 20120419
  Receipt Date: 20120406
  Transmission Date: 20120825
  Serious: Yes (Hospitalization)
  Sender: FDA-Public Use
  Company Number: BE-UCBSA-054865

PATIENT
  Age: 50 Year
  Sex: Female
  Weight: 90 kg

DRUGS (29)
  1. DEPAKENE [Concomitant]
     Route: 048
  2. LYRICA [Concomitant]
     Route: 048
  3. ZOCOR [Concomitant]
     Route: 048
  4. ROCEPHIN [Concomitant]
     Indication: NEUROBORRELIOSIS
  5. WARFARIN SODIUM [Concomitant]
     Indication: CEREBROVASCULAR ACCIDENT
  6. VIMPAT [Suspect]
     Indication: EPILEPSY
     Route: 048
     Dates: start: 20110205
  7. MOVIPREP [Concomitant]
     Route: 048
  8. D-CURE [Concomitant]
     Dosage: UNKNOWN DOSE
     Route: 048
  9. ISO-BETADINE [Concomitant]
  10. PANTOPRAZOLE [Concomitant]
     Route: 048
  11. CLONAZEPAM [Concomitant]
     Route: 048
  12. CETIRIZINE [Concomitant]
     Route: 048
  13. LEVOTHYROXINE SODIUM [Concomitant]
     Route: 048
  14. OXYCODONE HCL [Concomitant]
     Dosage: SUFFICIENT QUANTITY
     Route: 048
  15. BETAHISTINE [Concomitant]
     Route: 048
  16. FRAXIPARINE [Concomitant]
     Indication: TOOTH DISORDER
  17. MOTILIUM [Concomitant]
     Dosage: DOSE:10MG
     Route: 048
  18. CALCIUM CARBONATE [Concomitant]
     Route: 048
  19. DURAGESIC-100 [Concomitant]
     Dosage: 50 MCG
     Route: 062
  20. LEVOTHYROXINE SODIUM [Concomitant]
     Route: 048
  21. VIMPAT [Suspect]
     Route: 048
     Dates: start: 20101001, end: 20101001
  22. ESTIVAN [Concomitant]
     Route: 048
  23. OXYAL OOGDRUP [Concomitant]
     Dosage: UNKNOWN DOSE
  24. VALIUM [Concomitant]
     Dosage: QUANTITY SUFFICIENT
  25. CALCIUM CARBONATE [Concomitant]
     Route: 048
  26. ACETAMINOPHEN [Concomitant]
     Dosage: DOSE:1000MG; QUANTITY SUFFICIENT
     Route: 048
  27. LORMETAZEPAM [Concomitant]
     Route: 048
  28. NOVOLIZER BUDESONIDE INH [Concomitant]
     Dosage: UNKNOWN DOSE; FORM: INHALER
  29. PLAQUENIL [Concomitant]
     Route: 048

REACTIONS (2)
  - EOSINOPHILIA [None]
  - PYREXIA [None]
